FAERS Safety Report 7060089-0 (Version None)
Quarter: 2010Q4

REPORT INFORMATION
  Report Type: 
  Country: None (occurrence: None)
  Receive Date: 20101025
  Receipt Date: 20101015
  Transmission Date: 20110411
  Serious: Yes (Other)
  Sender: FDA-Public Use
  Company Number: GXKR2010IN11710

PATIENT
  Age: 43 Year
  Sex: Male

DRUGS (1)
  1. METRONIDAZOLE [Suspect]
     Indication: HEPATIC AMOEBIASIS
     Dosage: 400 MG, TID
     Route: 048

REACTIONS (10)
  - ALANINE AMINOTRANSFERASE INCREASED [None]
  - ASPARTATE AMINOTRANSFERASE INCREASED [None]
  - ASTHENIA [None]
  - ATAXIA [None]
  - CSF GLUCOSE DECREASED [None]
  - DRUG TOXICITY [None]
  - DYSARTHRIA [None]
  - ENCEPHALOPATHY [None]
  - NYSTAGMUS [None]
  - VERTIGO [None]
